FAERS Safety Report 11882452 (Version 1)
Quarter: 2015Q4

REPORT INFORMATION
  Report Type: Report from Study
  Country: CO (occurrence: CO)
  Receive Date: 20151231
  Receipt Date: 20151231
  Transmission Date: 20160305
  Serious: No
  Sender: FDA-Public Use
  Company Number: CO-JNJFOC-20151223522

PATIENT
  Age: 45 Year
  Sex: Male
  Weight: 101 kg

DRUGS (1)
  1. STELARA [Suspect]
     Active Substance: USTEKINUMAB
     Indication: PSORIASIS
     Route: 058
     Dates: start: 20150616

REACTIONS (1)
  - Erythrodermic psoriasis [Not Recovered/Not Resolved]

NARRATIVE: CASE EVENT DATE: 20151119
